FAERS Safety Report 5971558-6 (Version None)
Quarter: 2008Q4

REPORT INFORMATION
  Report Type: 
  Country: None (occurrence: None)
  Receive Date: 20081201
  Receipt Date: 20080925
  Transmission Date: 20090506
  Serious: No
  Sender: FDA-Public Use
  Company Number: US-AMGEN-KDL304140

PATIENT
  Sex: Female
  Weight: 58.1 kg

DRUGS (4)
  1. ENBREL [Suspect]
     Indication: RHEUMATOID ARTHRITIS
     Route: 058
     Dates: start: 20080501
  2. PLAQUENIL [Concomitant]
  3. ACTONEL [Concomitant]
  4. DARVOCET-N 100 [Concomitant]

REACTIONS (1)
  - RHEUMATOID ARTHRITIS [None]
